FAERS Safety Report 8821415 (Version 2)
Quarter: 2012Q4

REPORT INFORMATION
  Report Type: 
  Country: US (occurrence: US)
  Receive Date: 20121002
  Receipt Date: 20121010
  Transmission Date: 20130627
  Serious: Yes (Death, Life-Threatening)
  Sender: FDA-Public Use
  Company Number: US-MERCK-1209USA011411

PATIENT
  Sex: Male

DRUGS (2)
  1. NOXAFIL [Suspect]
     Indication: LUNG INFECTION
     Dosage: 630 ml, qid
     Route: 048
     Dates: start: 20111021
  2. TRAZODONE HYDROCHLORIDE [Concomitant]

REACTIONS (1)
  - Death [Fatal]
